APPROVED DRUG PRODUCT: OLMESARTAN MEDOXOMIL
Active Ingredient: OLMESARTAN MEDOXOMIL
Strength: 40MG
Dosage Form/Route: TABLET;ORAL
Application: A091079 | Product #003
Applicant: TEVA PHARMACEUTICALS USA
Approved: Apr 24, 2017 | RLD: No | RS: No | Type: DISCN